FAERS Safety Report 8683106 (Version 2)
Quarter: 2012Q4

REPORT INFORMATION
  Report Type: 
  Country: US (occurrence: US)
  Receive Date: 20120725
  Receipt Date: 20120906
  Transmission Date: 20130627
  Serious: No
  Sender: FDA-Public Use
  Company Number: US-009507513-1207USA008914

PATIENT
  Age: 44 Year
  Sex: Female
  Weight: 65.76 kg

DRUGS (2)
  1. LOTRIMIN AF RINGWORM CREAM [Suspect]
     Dosage: 1 DF, bid
     Route: 061
     Dates: start: 20120605, end: 20120620
  2. LOTRIMIN AF RINGWORM CREAM [Suspect]
     Dosage: UNK

REACTIONS (2)
  - Condition aggravated [Not Recovered/Not Resolved]
  - Drug ineffective [Unknown]
